FAERS Safety Report 4856626-4 (Version None)
Quarter: 2005Q4

REPORT INFORMATION
  Report Type: 
  Country: None (occurrence: None)
  Receive Date: 20051219
  Receipt Date: 20050110
  Transmission Date: 20060501
  Serious: No
  Sender: FDA-Public Use
  Company Number: US-GLAXOSMITHKLINE-A0539977A

PATIENT
  Age: 30 Year
  Sex: Male

DRUGS (3)
  1. NICODERM CQ [Suspect]
     Dates: start: 20050105
  2. NICODERM CQ [Suspect]
  3. ALLERGY INJECTION [Concomitant]

REACTIONS (5)
  - HYPERSENSITIVITY [None]
  - PERIORBITAL OEDEMA [None]
  - PRURITUS GENERALISED [None]
  - RASH GENERALISED [None]
  - URTICARIA [None]
